FAERS Safety Report 12756077 (Version 1)
Quarter: 2016Q3

REPORT INFORMATION
  Report Type: Spontaneous
  Country: ES (occurrence: ES)
  Receive Date: 20160916
  Receipt Date: 20160916
  Transmission Date: 20161109
  Serious: Yes (Other)
  Sender: FDA-Public Use
  Company Number: ES-MYLANLABS-2016M1038181

PATIENT

DRUGS (11)
  1. LIPOSOMAL DOXORUBICIN HCL [Suspect]
     Active Substance: DOXORUBICIN HYDROCHLORIDE
     Dosage: 50 MG/M2 ON DAY 1, EVERY 21 DAYS
     Route: 050
     Dates: start: 201203
  2. LIPOSOMAL DOXORUBICIN HCL [Suspect]
     Active Substance: DOXORUBICIN HYDROCHLORIDE
     Indication: ADRENOCORTICAL CARCINOMA
     Dosage: 20 MG/M2 ON DAY 1, EVERY 21 DAYS
     Route: 050
     Dates: start: 201012
  3. DOXORUBICIN [Suspect]
     Active Substance: DOXORUBICIN
     Indication: ADRENOCORTICAL CARCINOMA
     Dosage: 50 MG/M2 ON DAY 1, EVERY 21 DAYS
     Route: 065
     Dates: start: 200909
  4. ETOPOSIDE. [Suspect]
     Active Substance: ETOPOSIDE
     Indication: ADRENOCORTICAL CARCINOMA
     Dosage: 100 MG/M2 ON DAYS 1, 2 ,3, EVERY 21 DAYS
     Route: 065
  5. CISPLATIN. [Suspect]
     Active Substance: CISPLATIN
     Indication: ADRENOCORTICAL CARCINOMA
     Dosage: 50 MG/M2 ON DAY 1
     Route: 065
     Dates: start: 200909
  6. IFOSFAMIDE. [Suspect]
     Active Substance: IFOSFAMIDE
     Indication: ADRENOCORTICAL CARCINOMA
     Dosage: 2000 MG/M2
     Route: 065
     Dates: start: 201012
  7. GEMCITABINE [Suspect]
     Active Substance: GEMCITABINE\GEMCITABINE HYDROCHLORIDE
     Indication: ADRENOCORTICAL CARCINOMA
     Dosage: 800 MG/M2
     Route: 065
     Dates: start: 201206
  8. MESNA. [Concomitant]
     Active Substance: MESNA
     Indication: ADRENOCORTICAL CARCINOMA
     Dosage: 2000 MG/M2 ON DAYS 1-3
     Route: 065
     Dates: start: 201012
  9. CAPECITABINE. [Suspect]
     Active Substance: CAPECITABINE
     Indication: ADRENOCORTICAL CARCINOMA
     Dosage: 800 MG
     Route: 065
     Dates: start: 201206
  10. CISPLATIN. [Suspect]
     Active Substance: CISPLATIN
     Dosage: 100 MG/M2 ON DAY 1
     Route: 065
  11. FILGRASTIM [Suspect]
     Active Substance: FILGRASTIM
     Indication: ADRENOCORTICAL CARCINOMA
     Dosage: 300 MCG, 5 DAYS
     Route: 065

REACTIONS (7)
  - Mucosal inflammation [Unknown]
  - Gastroenteritis [Unknown]
  - Pyrexia [Unknown]
  - Cystitis haemorrhagic [Unknown]
  - Pancytopenia [Unknown]
  - Hyperadrenocorticism [Unknown]
  - Blood creatinine abnormal [Unknown]
